FAERS Safety Report 19431960 (Version 2)
Quarter: 2024Q3

REPORT INFORMATION
  Report Type: Spontaneous
  Country: CA (occurrence: CA)
  Receive Date: 20210617
  Receipt Date: 20240920
  Transmission Date: 20241016
  Serious: Yes (Other)
  Sender: PFIZER
  Company Number: CA-PFIZER INC-2021671974

PATIENT
  Age: 59 Year
  Sex: Male

DRUGS (13)
  1. XELJANZ [Suspect]
     Active Substance: TOFACITINIB CITRATE
     Indication: Rheumatoid arthritis
     Dosage: 5 MG, 2X/DAY
     Route: 048
     Dates: start: 20170724
  2. BACTRIM [Concomitant]
     Active Substance: SULFAMETHOXAZOLE\TRIMETHOPRIM
     Dosage: 1 DF, DOSAGE INFO NOT AVAILABLE
     Route: 065
  3. LYRICA [Concomitant]
     Active Substance: PREGABALIN
     Dosage: 1 DF,UNK DOSE
  4. NAPROXEN [Concomitant]
     Active Substance: NAPROXEN
     Dosage: 1 DF, DOSAGE INFO NOT AVAILABLE
     Route: 065
  5. PLAQUENIL [Concomitant]
     Active Substance: HYDROXYCHLOROQUINE SULFATE
     Dosage: 1 DF, DOSAGE INFO NOT AVAILABLE
     Route: 065
  6. RITUXIMAB [Concomitant]
     Active Substance: RITUXIMAB
     Indication: Rheumatoid arthritis
     Dosage: 1000MG DAY 1 AND DAY 15
     Route: 042
     Dates: start: 20210719, end: 20210805
  7. RITUXIMAB [Concomitant]
     Active Substance: RITUXIMAB
     Dosage: 1000MG DAY 1 AND DAY 15
     Route: 042
     Dates: start: 20220125, end: 20220208
  8. RITUXIMAB [Concomitant]
     Active Substance: RITUXIMAB
     Dosage: 1000MG DAY 1 AND DAY 15
     Route: 042
     Dates: start: 20230315, end: 20230330
  9. RITUXIMAB [Concomitant]
     Active Substance: RITUXIMAB
     Dosage: 1000MG DAY 1 AND DAY 15
     Route: 042
     Dates: start: 20240131, end: 20240213
  10. RITUXIMAB [Concomitant]
     Active Substance: RITUXIMAB
     Dosage: 1000MG DAY 1 AND DAY 15
     Route: 042
     Dates: start: 20240801, end: 20240815
  11. RITUXIMAB [Concomitant]
     Active Substance: RITUXIMAB
     Dosage: 1000MG DAY 1 AND DAY 15
     Route: 042
     Dates: start: 20240815
  12. SULFASALAZINE [Concomitant]
     Active Substance: SULFASALAZINE
     Dosage: UNK
  13. TYLENOL [Concomitant]
     Active Substance: ACETAMINOPHEN
     Dosage: UNK

REACTIONS (4)
  - Interstitial lung disease [Not Recovered/Not Resolved]
  - Lung diffusion disorder [Not Recovered/Not Resolved]
  - Dyspnoea [Not Recovered/Not Resolved]
  - Drug ineffective [Not Recovered/Not Resolved]
